FAERS Safety Report 11026228 (Version 1)
Quarter: 2015Q2

REPORT INFORMATION
  Report Type: Spontaneous
  Country: US (occurrence: None)
  Receive Date: 20150413
  Receipt Date: 20150413
  Transmission Date: 20150821
  Serious: Yes (Disabling)
  Sender: FDA-Public Use
  Company Number: None

PATIENT
  Age: 71 Year
  Sex: Female

DRUGS (7)
  1. OSPHENA [Suspect]
     Active Substance: OSPEMIFENE
     Indication: HORMONE LEVEL ABNORMAL
     Dosage: 1 PILL
     Route: 048
     Dates: start: 20150309, end: 20150328
  2. ALIVE MULTI-VITA [Concomitant]
  3. ADVIL [Concomitant]
     Active Substance: IBUPROFEN
  4. OSPHENA [Suspect]
     Active Substance: OSPEMIFENE
     Indication: VULVOVAGINAL DRYNESS
     Dosage: 1 PILL
     Route: 048
     Dates: start: 20150309, end: 20150328
  5. CITRACAL-D [Concomitant]
  6. LEVOTHYROXINE [Concomitant]
     Active Substance: LEVOTHYROXINE
  7. BIO FLEX [Concomitant]

REACTIONS (5)
  - Aphthous stomatitis [None]
  - Fatigue [None]
  - Hot flush [None]
  - Psychomotor skills impaired [None]
  - Asthenia [None]

NARRATIVE: CASE EVENT DATE: 20150309
